FAERS Safety Report 14147288 (Version 1)
Quarter: 2017Q4

REPORT INFORMATION
  Report Type: Spontaneous
  Country: US (occurrence: US)
  Receive Date: 20171031
  Receipt Date: 20171031
  Transmission Date: 20180321
  Serious: No
  Sender: FDA-Public Use
  Company Number: US-BAYER-2017-202781

PATIENT
  Age: 85 Year
  Sex: Male
  Weight: 82 kg

DRUGS (2)
  1. HYDROCHLOROTHIAZIDE. [Concomitant]
     Active Substance: HYDROCHLOROTHIAZIDE
     Dosage: UNK
  2. ALEVE [Suspect]
     Active Substance: NAPROXEN SODIUM
     Dosage: UNK(1.5 TABLETS ONCE DAILY)
     Route: 048
     Dates: start: 20170601

REACTIONS (5)
  - Off label use [Unknown]
  - Wrong technique in product usage process [Unknown]
  - Extra dose administered [Unknown]
  - Product use in unapproved indication [Unknown]
  - Therapeutic response unexpected [Unknown]

NARRATIVE: CASE EVENT DATE: 20170601
